FAERS Safety Report 14670560 (Version 3)
Quarter: 2018Q2

REPORT INFORMATION
  Report Type: Spontaneous
  Country: US (occurrence: US)
  Receive Date: 20180322
  Receipt Date: 20180522
  Transmission Date: 20180711
  Serious: Yes (Other)
  Sender: FDA-Public Use
  Company Number: US-NAPPMUNDI-USA-2018-0143097

PATIENT
  Sex: Male

DRUGS (6)
  1. OXYCONTIN [Suspect]
     Active Substance: OXYCODONE HYDROCHLORIDE
     Dosage: 10 MG, Q12H
     Route: 048
     Dates: start: 1997
  2. DILAUDID [Suspect]
     Active Substance: HYDROMORPHONE HYDROCHLORIDE
     Indication: BREAKTHROUGH PAIN
     Dosage: 16 MG, DAILY
     Route: 048
     Dates: end: 2011
  3. OXYCONTIN [Suspect]
     Active Substance: OXYCODONE HYDROCHLORIDE
     Indication: PAIN
     Dosage: 240 MG, DAILY
     Route: 048
     Dates: end: 2011
  4. NORCO [Suspect]
     Active Substance: ACETAMINOPHEN\HYDROCODONE BITARTRATE
     Indication: PAIN
     Dosage: 10/ 325 MG, UNK
     Route: 048
     Dates: start: 201707
  5. NORCO [Suspect]
     Active Substance: ACETAMINOPHEN\HYDROCODONE BITARTRATE
     Dosage: 10/ 325 MG, UNK
     Route: 048
     Dates: start: 1997
  6. DILAUDID [Suspect]
     Active Substance: HYDROMORPHONE HYDROCHLORIDE
     Dosage: 2 MG, Q4- 6H
     Route: 048
     Dates: start: 1997

REACTIONS (20)
  - Ankle operation [Unknown]
  - Fracture [Unknown]
  - Loss of personal independence in daily activities [Unknown]
  - Spinal fracture [Unknown]
  - Necrotising fasciitis staphylococcal [Unknown]
  - Medical device implantation [Unknown]
  - Drug detoxification [Unknown]
  - Disability [Unknown]
  - Suicidal ideation [Recovered/Resolved]
  - Muscle atrophy [Not Recovered/Not Resolved]
  - Gait disturbance [Not Recovered/Not Resolved]
  - Pain [Unknown]
  - Drug ineffective [Unknown]
  - Haemoptysis [Unknown]
  - Vomiting [Not Recovered/Not Resolved]
  - Neck surgery [Unknown]
  - Temporomandibular joint syndrome [Unknown]
  - Pneumonia [Unknown]
  - Spinal operation [Unknown]
  - Tooth loss [Unknown]

NARRATIVE: CASE EVENT DATE: 1997
